FAERS Safety Report 23387163 (Version 1)
Quarter: 2024Q1

REPORT INFORMATION
  Report Type: Spontaneous
  Country: US (occurrence: None)
  Receive Date: 20240109
  Receipt Date: 20240109
  Transmission Date: 20240409
  Serious: Yes (Disabling)
  Sender: FDA-Public Use
  Company Number: None

PATIENT
  Age: 13 Year
  Sex: Male
  Weight: 84.15 kg

DRUGS (4)
  1. MONTELUKAST SODIUM [Suspect]
     Active Substance: MONTELUKAST SODIUM
     Indication: Asthma
     Dates: start: 20130901, end: 20230901
  2. Astarys [Concomitant]
  3. VRAYLAR [Concomitant]
     Active Substance: CARIPRAZINE
  4. EPIPEN [Concomitant]
     Active Substance: EPINEPHRINE

REACTIONS (14)
  - Attention deficit hyperactivity disorder [None]
  - Anxiety [None]
  - Depression [None]
  - Affect lability [None]
  - Bipolar disorder [None]
  - Aggression [None]
  - Learning disability [None]
  - Mood altered [None]
  - Nightmare [None]
  - Phonophobia [None]
  - Fear of crowded places [None]
  - Suicidal behaviour [None]
  - Intentional self-injury [None]
  - Hallucination [None]

NARRATIVE: CASE EVENT DATE: 20130901
